FAERS Safety Report 18061160 (Version 1)
Quarter: 2020Q3

REPORT INFORMATION
  Report Type: Spontaneous
  Country: ES (occurrence: ES)
  Receive Date: 20200723
  Receipt Date: 20200723
  Transmission Date: 20201103
  Serious: Yes (Other)
  Sender: FDA-Public Use
  Company Number: ES-VELOXIS PHARMACEUTICALS-2020VELES-000635

PATIENT
  Age: 36 Year
  Sex: Male

DRUGS (2)
  1. MYCOPHENOLIC ACID. [Concomitant]
     Active Substance: MYCOPHENOLIC ACID
     Indication: PRODUCT USED FOR UNKNOWN INDICATION
     Dosage: 360 MILLIGRAM, Q12H
     Route: 065
  2. ENVARSUS XR [Suspect]
     Active Substance: TACROLIMUS
     Indication: TRANSPLANT
     Dosage: UNK UNK, UNKNOWN FREQ.
     Route: 065

REACTIONS (9)
  - Kidney transplant rejection [Unknown]
  - BK virus infection [Recovered/Resolved]
  - Blood creatinine increased [Unknown]
  - Transplant rejection [Unknown]
  - Diarrhoea [Unknown]
  - Urinary tract infection viral [Recovered/Resolved]
  - Polyomavirus viraemia [Recovered/Resolved]
  - Immunosuppressant drug level decreased [Unknown]
  - Vomiting [Unknown]

NARRATIVE: CASE EVENT DATE: 201003
